FAERS Safety Report 22735386 (Version 2)
Quarter: 2024Q2

REPORT INFORMATION
  Report Type: Other
  Country: SE (occurrence: None)
  Receive Date: 20230721
  Receipt Date: 20240607
  Transmission Date: 20240716
  Serious: Yes (Death, Other)
  Sender: FDA-Public Use
  Company Number: SE-ROCHE-3390969

PATIENT

DRUGS (7)
  1. ATEZOLIZUMAB [Suspect]
     Active Substance: ATEZOLIZUMAB
     Indication: Neoplasm malignant
     Route: 065
  2. NIVOLUMAB [Suspect]
     Active Substance: NIVOLUMAB
     Indication: Neoplasm malignant
     Route: 065
  3. PEMBROLIZUMAB [Suspect]
     Active Substance: PEMBROLIZUMAB
     Indication: Neoplasm malignant
     Route: 065
  4. IPILIMUMAB [Suspect]
     Active Substance: IPILIMUMAB
     Indication: Neoplasm malignant
     Route: 065
  5. DURVALUMAB [Suspect]
     Active Substance: DURVALUMAB
     Indication: Neoplasm malignant
     Route: 065
  6. CEMIPLIMAB [Suspect]
     Active Substance: CEMIPLIMAB
     Indication: Neoplasm malignant
     Route: 065
  7. NIVOLUMAB [Suspect]
     Active Substance: NIVOLUMAB

REACTIONS (9)
  - Immune-mediated adverse reaction [Fatal]
  - Autoimmune endocrine disorder [Unknown]
  - Skin disorder [Unknown]
  - Immune-mediated gastrointestinal disorder [Unknown]
  - Rheumatic disorder [Unknown]
  - Hepatobiliary disease [Unknown]
  - Immune-mediated neurological disorder [Unknown]
  - Nephritis [Unknown]
  - Pneumonitis [Unknown]
